FAERS Safety Report 5322208-3 (Version None)
Quarter: 2007Q2

REPORT INFORMATION
  Report Type: 
  Country: None (occurrence: None)
  Receive Date: 20070511
  Receipt Date: 20070503
  Transmission Date: 20071010
  Serious: Yes (Other)
  Sender: FDA-Public Use
  Company Number: DK-ROCHE-491415

PATIENT
  Age: 26 Year
  Sex: Female
  Weight: 66 kg

DRUGS (3)
  1. PEGASYS [Suspect]
     Route: 058
     Dates: start: 20070108, end: 20070321
  2. PEGASYS [Suspect]
     Route: 058
     Dates: start: 20070321, end: 20070410
  3. COPEGUS [Concomitant]

REACTIONS (2)
  - EYE PAIN [None]
  - VISUAL DISTURBANCE [None]
